FAERS Safety Report 5952855-7 (Version None)
Quarter: 2008Q4

REPORT INFORMATION
  Report Type: 
  Country: None (occurrence: None)
  Receive Date: 20081114
  Receipt Date: 20081110
  Transmission Date: 20090506
  Serious: Yes (Other)
  Sender: FDA-Public Use
  Company Number: BR-BRISTOL-MYERS SQUIBB COMPANY-14392468

PATIENT
  Age: 42 Year
  Sex: Male

DRUGS (1)
  1. MITOMYCIN [Suspect]
     Indication: GLAUCOMA
     Dosage: 1 DOSAGE FORM = 0.3 MG/ML
     Route: 031

REACTIONS (1)
  - STAPHYLOMA [None]
